FAERS Safety Report 18630375 (Version 2)
Quarter: 2020Q4

REPORT INFORMATION
  Report Type: Spontaneous
  Country: US (occurrence: US)
  Receive Date: 20201218
  Receipt Date: 20201222
  Transmission Date: 20210114
  Serious: No
  Sender: FDA-Public Use
  Company Number: US-ENDO PHARMACEUTICALS INC-2020-006237

PATIENT
  Age: 66 Year
  Sex: Male

DRUGS (2)
  1. XIAFLEX [Suspect]
     Active Substance: COLLAGENASE CLOSTRIDIUM HISTOLYTICUM
     Dosage: UNKNOWN, UNKNOWN; CYCLE ONE, INJECTION TWO
     Route: 026
     Dates: start: 20200610
  2. XIAFLEX [Suspect]
     Active Substance: COLLAGENASE CLOSTRIDIUM HISTOLYTICUM
     Indication: PEYRONIE^S DISEASE
     Dosage: UNKNOWN, UNKNOWN; CYCLE ONE, INJECTION ONE
     Route: 026
     Dates: start: 20200603

REACTIONS (5)
  - Penile pain [Unknown]
  - Penile contusion [Unknown]
  - Therapeutic product effect decreased [Unknown]
  - Penis disorder [Unknown]
  - Wrong technique in product usage process [Unknown]

NARRATIVE: CASE EVENT DATE: 202006
